FAERS Safety Report 13705337 (Version 1)
Quarter: 2017Q2

REPORT INFORMATION
  Report Type: Spontaneous
  Country: US (occurrence: US)
  Receive Date: 20170630
  Receipt Date: 20170630
  Transmission Date: 20170830
  Serious: No
  Sender: FDA-Public Use
  Company Number: ALCN2017US004021

PATIENT
  Age: 29 Year
  Sex: Female

DRUGS (2)
  1. ZYMAXID [Concomitant]
     Active Substance: GATIFLOXACIN
     Indication: CORNEAL DISORDER
     Dosage: QID (1 WEEK)
     Route: 047
  2. PREDNISOLONE ACETATE. [Suspect]
     Active Substance: PREDNISOLONE ACETATE
     Indication: PRODUCT USED FOR UNKNOWN INDICATION
     Dosage: QID,BID,TID
     Route: 047

REACTIONS (1)
  - Astigmatism [Unknown]

NARRATIVE: CASE EVENT DATE: 20170529
